FAERS Safety Report 24567253 (Version 1)
Quarter: 2024Q4

REPORT INFORMATION
  Report Type: Report from Study
  Country: NL (occurrence: NL)
  Receive Date: 20241030
  Receipt Date: 20241030
  Transmission Date: 20250115
  Serious: Yes (Death)
  Sender: BAYER HEALTHCARE PHARMACEUTICALS INC.
  Company Number: NL-BAYER-2024A155228

PATIENT
  Age: 65 Year
  Sex: Male

DRUGS (1)
  1. ADEMPAS [Suspect]
     Active Substance: RIOCIGUAT
     Indication: Pulmonary hypertension
     Dosage: 1.5 MG, UNK
     Route: 048
     Dates: start: 20240303, end: 20241026

REACTIONS (1)
  - Death [Fatal]

NARRATIVE: CASE EVENT DATE: 20241026
